FAERS Safety Report 12262478 (Version 1)
Quarter: 2016Q2

REPORT INFORMATION
  Report Type: Spontaneous
  Country: US (occurrence: US)
  Receive Date: 20160413
  Receipt Date: 20160413
  Transmission Date: 20160815
  Serious: Yes (Other)
  Sender: FDA-Public Use
  Company Number: US-BEH-2016061012

PATIENT
  Age: 26 Year
  Sex: Female

DRUGS (1)
  1. HIZENTRA [Suspect]
     Active Substance: HUMAN IMMUNOGLOBULIN G
     Indication: AUTOIMMUNE DISORDER
     Route: 058
     Dates: start: 20140623

REACTIONS (2)
  - Foot fracture [Unknown]
  - Accident [Unknown]

NARRATIVE: CASE EVENT DATE: 20160318
